FAERS Safety Report 14084290 (Version 1)
Quarter: 2017Q4

REPORT INFORMATION
  Report Type: Spontaneous
  Country: US (occurrence: US)
  Receive Date: 20171013
  Receipt Date: 20171013
  Transmission Date: 20180321
  Serious: No
  Sender: FDA-Public Use
  Company Number: US-TEVA-813581USA

PATIENT
  Sex: Female

DRUGS (2)
  1. FENTANYL TRANSDERMAL SYSTEM [Concomitant]
     Active Substance: FENTANYL
  2. PROVIGIL [Suspect]
     Active Substance: MODAFINIL

REACTIONS (3)
  - Withdrawal syndrome [Unknown]
  - Drug interaction [Unknown]
  - Drug effect decreased [Unknown]
